FAERS Safety Report 7498334-X (Version None)
Quarter: 2011Q2

REPORT INFORMATION
  Report Type: 
  Country: None (occurrence: None)
  Receive Date: 20110524
  Receipt Date: 20080214
  Transmission Date: 20111010
  Serious: Yes (Other)
  Sender: FDA-Public Use
  Company Number: US-BAYER-200924658NA

PATIENT
  Age: 73 Year
  Sex: Female
  Weight: 72.472 kg

DRUGS (19)
  1. PLATELETS [Concomitant]
     Dosage: UNK
     Dates: start: 20060525
  2. PLASMA [Concomitant]
     Dosage: UNK
     Dates: start: 20050525
  3. DOPAMINE HCL [Concomitant]
     Dosage: TITRATION
     Route: 042
     Dates: start: 20060525
  4. PROTAMINE SULFATE [Concomitant]
     Dosage: UNK
     Route: 042
     Dates: start: 20060525
  5. ACETYLSALICYLIC ACID SRT [Concomitant]
     Dosage: 81 MG, QD
     Route: 048
  6. PRIMACOR [Concomitant]
     Dosage: 25 MILLIGRAMS
     Route: 042
     Dates: start: 20060525
  7. TRASYLOL [Suspect]
     Indication: CORONARY ARTERY BYPASS
     Dosage: TEST DOSE (1ML) LOADING DOSE (199 ML LOADING DOSE)
     Route: 042
     Dates: start: 20060525, end: 20060525
  8. LASIX [Concomitant]
     Dosage: 40 MG, BID
     Route: 048
  9. DOBUTAMINE HYDROCHLORIDE [Concomitant]
     Dosage: TITRATION
     Route: 042
     Dates: start: 20060525
  10. METOPROLOL SUCCINATE [Concomitant]
  11. AMLODIPINE W/BENAZEPRIL [Concomitant]
     Dosage: 10/20MG PER DAY
     Route: 048
  12. FENTANYL [Concomitant]
     Dosage: UNK
     Route: 042
     Dates: start: 20060525
  13. LASIX [Concomitant]
     Dosage: UNK
     Route: 042
     Dates: start: 20060525
  14. RED BLOOD CELLS [Concomitant]
     Dosage: UNK
     Dates: start: 20060525
  15. HEPARIN [Concomitant]
     Dosage: 2900 UNITS
     Route: 042
     Dates: start: 20060525
  16. AMIODARONE HCL [Concomitant]
     Dosage: 0.5 MILLIGRAMS PER MINUTE
     Route: 042
     Dates: start: 20060525
  17. TRASYLOL [Suspect]
     Indication: MITRAL VALVE REPLACEMENT
  18. NATRECOR [Concomitant]
     Dosage: UNK
     Route: 042
     Dates: start: 20060525
  19. SODIUM NITROPRUSSIDE [Concomitant]
     Dosage: TITRATION
     Route: 042
     Dates: start: 20060525

REACTIONS (11)
  - RENAL FAILURE [None]
  - RENAL IMPAIRMENT [None]
  - EMOTIONAL DISTRESS [None]
  - SHOCK [None]
  - INJURY [None]
  - ANXIETY [None]
  - UNEVALUABLE EVENT [None]
  - PAIN [None]
  - STRESS [None]
  - MULTI-ORGAN FAILURE [None]
  - FEAR [None]
